FAERS Safety Report 9391975 (Version 1)
Quarter: 2013Q3

REPORT INFORMATION
  Report Type: Spontaneous
  Country: GB (occurrence: GB)
  Receive Date: 20130709
  Receipt Date: 20130709
  Transmission Date: 20140515
  Serious: Yes (Other)
  Sender: FDA-Public Use
  Company Number: GB-009507513-1307GBR000825

PATIENT
  Age: 59 Year
  Sex: Female
  Weight: 72 kg

DRUGS (2)
  1. COZAAR 50 MG [Suspect]
     Indication: HYPERTENSION
     Dosage: 50 MG, QD
     Route: 048
     Dates: start: 1995, end: 2008
  2. AMIAS [Suspect]
     Indication: HYPERTENSION
     Dosage: 16 MG, QD
     Route: 048
     Dates: start: 2008

REACTIONS (5)
  - Hypothyroidism [Not Recovered/Not Resolved]
  - Lichen sclerosus [Not Recovered/Not Resolved]
  - Gastrooesophageal reflux disease [Not Recovered/Not Resolved]
  - Oral lichen planus [Not Recovered/Not Resolved]
  - Vitiligo [Not Recovered/Not Resolved]
